FAERS Safety Report 25520626 (Version 1)
Quarter: 2025Q3

REPORT INFORMATION
  Report Type: Spontaneous
  Country: AU (occurrence: AU)
  Receive Date: 20250705
  Receipt Date: 20250705
  Transmission Date: 20251020
  Serious: Yes (Hospitalization)
  Sender: MANKIND PHARMA
  Company Number: AU-MankindUS-000427

PATIENT
  Age: 4 Decade
  Sex: Female

DRUGS (1)
  1. GLYCOPYRROLATE [Suspect]
     Active Substance: GLYCOPYRROLATE
     Indication: Bradycardia

REACTIONS (2)
  - Stress cardiomyopathy [Unknown]
  - Maternal exposure during delivery [Unknown]
